FAERS Safety Report 8032673-9 (Version None)
Quarter: 2012Q1

REPORT INFORMATION
  Report Type: 
  Country: None (occurrence: None)
  Receive Date: 20120105
  Receipt Date: 20111221
  Transmission Date: 20120608
  Serious: Yes (Death)
  Sender: FDA-Public Use
  Company Number: 2011-4794

PATIENT
  Age: 60 Year
  Sex: Male

DRUGS (1)
  1. SOMATULINE AUTOSOLUTION 90MG (LANREOTIDE AUTOGEL) (LANREOTIDE) (LANREO [Suspect]
     Dosage: 90 MG (90 MG, 1 IN 1 28 D), INTRAMUSCULAR
     Route: 030

REACTIONS (1)
  - GENERAL PHYSICAL HEALTH DETERIORATION [None]
